FAERS Safety Report 14102926 (Version 1)
Quarter: 2017Q4

REPORT INFORMATION
  Report Type: Spontaneous
  Country: CZ (occurrence: CZ)
  Receive Date: 20171018
  Receipt Date: 20171018
  Transmission Date: 20180321
  Serious: Yes (Hospitalization)
  Sender: FDA-Public Use
  Company Number: CZ-BAYER-2017-198237

PATIENT
  Age: 73 Year
  Sex: Female

DRUGS (1)
  1. ULTRAVIST [Suspect]
     Active Substance: IOPROMIDE
     Indication: COMPUTERISED TOMOGRAM ABDOMEN
     Dosage: UNK UNK, ONCE
     Dates: start: 20171004, end: 20171004

REACTIONS (1)
  - Blister [Unknown]

NARRATIVE: CASE EVENT DATE: 2017
